FAERS Safety Report 8138572-6 (Version None)
Quarter: 2012Q1

REPORT INFORMATION
  Report Type: 
  Country: None (occurrence: None)
  Receive Date: 20120213
  Receipt Date: 20120206
  Transmission Date: 20120608
  Serious: Yes (Other)
  Sender: FDA-Public Use
  Company Number: GER/UKI/11/0018623

PATIENT
  Age: 22 Year
  Sex: Female

DRUGS (5)
  1. RISPERIDONE [Suspect]
     Indication: LEARNING DISABILITY
     Dosage: ORAL; 1.5 MG, 1 IN 1 D, ORAL
     Route: 048
     Dates: start: 20100708, end: 20100929
  2. RISPERIDONE [Suspect]
     Indication: LEARNING DISABILITY
     Dosage: ORAL; 1.5 MG, 1 IN 1 D, ORAL
     Route: 048
     Dates: start: 20100415, end: 20100708
  3. ESCITALOPRAM [Suspect]
     Indication: ANXIETY
     Dosage: 10 MG, 1 IN 1 D, ORAL; 10 MG, 2 IN 1 D, ORAL
     Route: 048
     Dates: start: 20101125, end: 20101230
  4. ESCITALOPRAM [Suspect]
     Indication: ANXIETY
     Dosage: 10 MG, 1 IN 1 D, ORAL; 10 MG, 2 IN 1 D, ORAL
     Route: 048
     Dates: start: 20101230, end: 20110520
  5. ORPHENADRINE CITRATE [Concomitant]

REACTIONS (4)
  - DISTURBANCE IN SOCIAL BEHAVIOUR [None]
  - OCULOGYRIC CRISIS [None]
  - ANXIETY [None]
  - CONDITION AGGRAVATED [None]
